FAERS Safety Report 4675236-5 (Version None)
Quarter: 2005Q2

REPORT INFORMATION
  Report Type: 
  Country: None (occurrence: None)
  Receive Date: 20050527
  Receipt Date: 20050404
  Transmission Date: 20051028
  Serious: Yes (Other)
  Sender: FDA-Public Use
  Company Number: PHBS2005BR04691

PATIENT
  Age: 70 Year
  Sex: Male
  Weight: 79 kg

DRUGS (5)
  1. RISPERIDONE [Concomitant]
     Indication: SCHIZOPHRENIA
     Dosage: UNK, QD
     Route: 048
  2. FRISIUM [Concomitant]
     Indication: SCHIZOPHRENIA
     Dosage: UNK, QD
     Route: 048
  3. SELOZOK [Concomitant]
     Indication: HYPERTENSION
     Dosage: 50 MG/D
     Route: 048
  4. DETROL [Concomitant]
     Indication: URINARY RETENTION
     Dosage: 2 MG, Q48H
     Route: 048
  5. LEPONEX [Suspect]
     Indication: SCHIZOPHRENIA
     Dosage: 200 MG/D
     Route: 048

REACTIONS (4)
  - ACUTE SINUSITIS [None]
  - COLONOSCOPY [None]
  - HELICOBACTER INFECTION [None]
  - PNEUMONIA [None]
